FAERS Safety Report 18959937 (Version 1)
Quarter: 2021Q1

REPORT INFORMATION
  Report Type: Spontaneous
  Country: US (occurrence: US)
  Receive Date: 20210302
  Receipt Date: 20210302
  Transmission Date: 20210420
  Serious: Yes (Other)
  Sender: FDA-Public Use
  Company Number: US-BAYER-2021-077953

PATIENT

DRUGS (3)
  1. ALKA?SELTZER PLUS COLD FORMULA [Suspect]
     Active Substance: ASPIRIN\CHLORPHENIRAMINE MALEATE\PHENYLEPHRINE BITARTRATE
     Indication: BLOOD DISORDER
     Dosage: 2 DF
     Route: 048
  2. ALKA?SELTZER PLUS COLD FORMULA [Suspect]
     Active Substance: ASPIRIN\CHLORPHENIRAMINE MALEATE\PHENYLEPHRINE BITARTRATE
     Indication: BLOOD DISORDER
     Dosage: 2 DF, QD
     Route: 048
  3. ALKA?SELTZER PLUS COLD FORMULA [Suspect]
     Active Substance: ASPIRIN\CHLORPHENIRAMINE MALEATE\PHENYLEPHRINE BITARTRATE
     Indication: BLOOD DISORDER
     Dosage: 2 DF, QD

REACTIONS (5)
  - Sinus disorder [Unknown]
  - Product use in unapproved indication [Unknown]
  - Cardiac flutter [Unknown]
  - Headache [Unknown]
  - Incorrect product administration duration [Unknown]
